FAERS Safety Report 6265833-8 (Version None)
Quarter: 2009Q3

REPORT INFORMATION
  Report Type: 
  Country: None (occurrence: None)
  Receive Date: 20090713
  Receipt Date: 20090701
  Transmission Date: 20100115
  Serious: Yes (Other)
  Sender: FDA-Public Use
  Company Number: B0581649A

PATIENT
  Sex: Female
  Weight: 62 kg

DRUGS (3)
  1. LAPATINIB [Suspect]
     Dosage: 1000MG PER DAY
     Route: 048
     Dates: start: 20081009
  2. VINORELBINE [Suspect]
     Dosage: 40.5MG PER DAY
     Route: 042
     Dates: start: 20081016, end: 20081023
  3. DRAINAGE OF LYMPH NODES [Concomitant]
     Route: 065

REACTIONS (1)
  - NEUTROPENIA [None]
